FAERS Safety Report 7746346-0 (Version None)
Quarter: 2011Q3

REPORT INFORMATION
  Report Type: 
  Country: None (occurrence: None)
  Receive Date: 20110907
  Receipt Date: 20110823
  Transmission Date: 20111222
  Serious: Yes (Other)
  Sender: FDA-Public Use
  Company Number: 2011AP001852

PATIENT
  Age: 32 Year
  Sex: Female

DRUGS (11)
  1. ACETAMINOPHEN [Concomitant]
  2. LANSOPRAZOLE [Concomitant]
  3. BARIUM (BARIUM) [Concomitant]
  4. ELETRIPTAN (ELETRIPTAN) [Concomitant]
  5. GABAPENTIN [Concomitant]
  6. PREGABALIN [Concomitant]
  7. ETHINYL ESTRADIOL TAB [Concomitant]
  8. DROSPIRENONE (DROSPIRENONE) [Concomitant]
  9. TOPIRAMATE [Suspect]
     Indication: PRODUCT USED FOR UNKNOWN INDICATION
  10. CODEINE PHOSPHATE (CODEINE PHOSPHATE) [Concomitant]
  11. DICLOFENAC SODIUM [Concomitant]

REACTIONS (4)
  - CONSTIPATION [None]
  - VISUAL IMPAIRMENT [None]
  - ANGER [None]
  - MEMORY IMPAIRMENT [None]
